FAERS Safety Report 7680586-4 (Version None)
Quarter: 2011Q3

REPORT INFORMATION
  Report Type: 
  Country: None (occurrence: None)
  Receive Date: 20110812
  Receipt Date: 20110804
  Transmission Date: 20111222
  Serious: Yes (Disabling)
  Sender: FDA-Public Use
  Company Number: DK-BRACCO-000072

PATIENT
  Sex: Female
  Weight: 49 kg

DRUGS (5)
  1. GADAVIST [Suspect]
     Indication: SCAN WITH CONTRAST
     Route: 042
     Dates: start: 20080131, end: 20080131
  2. MAGNEVIST [Suspect]
     Dosage: ADMINISTRATION DETAILS (DATES AND DOSAGE) NOT AVAILABLE
  3. MAGNEVIST [Suspect]
     Indication: SCAN WITH CONTRAST
     Dosage: DOSAGE UNKNOWN
     Route: 042
     Dates: start: 20070125, end: 20070125
  4. CONTRAST MEDIA [Suspect]
     Indication: SCAN WITH CONTRAST
     Route: 042
     Dates: start: 20060428, end: 20060428
  5. MAGNEVIST [Suspect]
     Route: 042
     Dates: start: 20050509, end: 20050509

REACTIONS (5)
  - PORPHYRIA [None]
  - NEPHROGENIC SYSTEMIC FIBROSIS [None]
  - BLISTER [None]
  - ECZEMA [None]
  - ARTHROPATHY [None]
